FAERS Safety Report 5360309-4 (Version None)
Quarter: 2007Q2

REPORT INFORMATION
  Report Type: 
  Country: None (occurrence: None)
  Receive Date: 20070614
  Receipt Date: 20070531
  Transmission Date: 20071010
  Serious: Yes (Other)
  Sender: FDA-Public Use
  Company Number: CIO06006996

PATIENT
  Age: 38 Year
  Sex: Female

DRUGS (3)
  1. CREST PRO-HEALTH TOOTHPASTE, CLEAN MINT FLAVOR (SODIUM POLYPHOSPHATE 1 [Suspect]
     Dosage: 1 APPLIC, 1 ONLY FOR 1 DAY, INTRAORAL
     Route: 048
     Dates: start: 20060505, end: 20060505
  2. SYNTHROID [Concomitant]
  3. BENICAR [Concomitant]

REACTIONS (15)
  - ANAPHYLACTIC REACTION [None]
  - ANAPHYLACTIC SHOCK [None]
  - DRY MOUTH [None]
  - FEAR [None]
  - GENERAL PHYSICAL HEALTH DETERIORATION [None]
  - GINGIVAL PAIN [None]
  - GLOSSODYNIA [None]
  - HYPERSENSITIVITY [None]
  - HYPERTENSION [None]
  - PREGNANCY [None]
  - SINUS TACHYCARDIA [None]
  - SKIN DISCOLOURATION [None]
  - SKIN DISORDER [None]
  - SKIN WARM [None]
  - TREMOR [None]
